FAERS Safety Report 7398412-X (Version None)
Quarter: 2011Q2

REPORT INFORMATION
  Report Type: 
  Country: None (occurrence: None)
  Receive Date: 20110406
  Receipt Date: 20110323
  Transmission Date: 20111010
  Serious: Yes (Disabling)
  Sender: FDA-Public Use
  Company Number: DE-MYLANLABS-2011S1006314

PATIENT
  Age: 68 Year
  Sex: Male

DRUGS (2)
  1. TETRACAINE POLYGYL STERILE OPHTHALMIC SOLUTION [Concomitant]
     Indication: TRABECULECTOMY
     Route: 047
  2. FLUOROURACIL [Suspect]
     Indication: TRABECULECTOMY
     Route: 057

REACTIONS (1)
  - CONVULSION [None]
